FAERS Safety Report 5045089-4 (Version None)
Quarter: 2006Q3

REPORT INFORMATION
  Report Type: 
  Country: None (occurrence: None)
  Receive Date: 20060705
  Receipt Date: 20060612
  Transmission Date: 20061208
  Serious: Yes (Other)
  Sender: FDA-Public Use
  Company Number: US200606002973

PATIENT
  Age: 74 Year
  Sex: Female

DRUGS (18)
  1. EVISTA [Suspect]
     Dosage: ORAL
     Route: 048
  2. ALBUTEROL SULFATE [Concomitant]
  3. SPIRIVA [Concomitant]
  4. ADVAIR DISKUS 100/50 [Concomitant]
  5. VERAPAMIL [Concomitant]
  6. KLOR-CON [Concomitant]
  7. THEOPHYLLINE [Concomitant]
  8. FUROSEMIDE [Concomitant]
  9. MECLIZINE [Concomitant]
  10. NEURONTIN [Concomitant]
  11. LIPITOR [Concomitant]
  12. CELEBREX [Concomitant]
  13. SYNTHROID [Concomitant]
  14. PREVACID [Concomitant]
  15. DARVOCET-N 100 [Concomitant]
  16. BECONASE (BECLOMETASONE DIPROPIONATE) [Concomitant]
  17. OSCAL (CALCIUM CARBONATE) [Concomitant]
  18. VITAMINS-MINERALS THERAPEUTIC (VITAMINS-MINERALS THERAPEUTIC UNKNOWN F [Concomitant]

REACTIONS (4)
  - BREAST CANCER FEMALE [None]
  - GASTRECTOMY [None]
  - HYSTERECTOMY [None]
  - UNEVALUABLE EVENT [None]
